FAERS Safety Report 9401018 (Version 2)
Quarter: 2013Q3

REPORT INFORMATION
  Report Type: Spontaneous
  Country: US (occurrence: US)
  Receive Date: 20130715
  Receipt Date: 20130726
  Transmission Date: 20140515
  Serious: Yes (Hospitalization)
  Sender: FDA-Public Use
  Company Number: US-TARO-2013P1011558

PATIENT
  Age: 66 Year
  Sex: Male
  Weight: 90.72 kg

DRUGS (13)
  1. WARFARIN SODIUM TABLETS USP 2.5MG [Suspect]
     Indication: CEREBROVASCULAR ACCIDENT
     Route: 048
     Dates: start: 2009, end: 2013
  2. WARFARIN SODIUM TABLETS USP 2.5MG [Suspect]
     Indication: CEREBROVASCULAR ACCIDENT
     Route: 048
     Dates: start: 201306
  3. WARFARIN SODIUM TABLETS USP 2.5MG [Suspect]
     Indication: CEREBROVASCULAR ACCIDENT
     Route: 048
     Dates: start: 201307
  4. WARFARIN SODIUM TABLETS USP 5MG [Suspect]
     Indication: CEREBROVASCULAR ACCIDENT
     Route: 048
     Dates: start: 2009, end: 2013
  5. WARFARIN SODIUM TABLETS USP 5MG [Suspect]
     Indication: CEREBROVASCULAR ACCIDENT
     Route: 048
     Dates: start: 201306
  6. WARFARIN SODIUM TABLETS USP 5MG [Suspect]
     Indication: CEREBROVASCULAR ACCIDENT
     Route: 048
     Dates: start: 201307
  7. SYNTHROID [Concomitant]
  8. METFORMIN [Concomitant]
  9. GLYBURIDE [Concomitant]
  10. INSULIN [Concomitant]
  11. ZOCOR [Concomitant]
  12. AMLODIPINE [Concomitant]
  13. ENALAPRIL [Concomitant]

REACTIONS (7)
  - International normalised ratio fluctuation [Not Recovered/Not Resolved]
  - Pulmonary thrombosis [Not Recovered/Not Resolved]
  - Convulsion [Unknown]
  - Epistaxis [Unknown]
  - Pulmonary hypertension [Not Recovered/Not Resolved]
  - Facial bones fracture [Unknown]
  - Fall [Unknown]
